FAERS Safety Report 24727759 (Version 2)
Quarter: 2024Q4

REPORT INFORMATION
  Report Type: Spontaneous
  Country: US (occurrence: US)
  Receive Date: 20241212
  Receipt Date: 20241227
  Transmission Date: 20250115
  Serious: No
  Sender: SCIEGEN PHARMACEUTICALS INC
  Company Number: US-SCIEGENP-2024SCSPO00418

PATIENT
  Age: 71 Year
  Sex: Female

DRUGS (1)
  1. QUETIAPINE [Suspect]
     Active Substance: QUETIAPINE
     Indication: Product used for unknown indication
     Route: 065

REACTIONS (3)
  - Somnolence [Recovered/Resolved]
  - Headache [Recovered/Resolved]
  - Insomnia [Recovered/Resolved]
